FAERS Safety Report 9072246 (Version 1)
Quarter: 2013Q1

REPORT INFORMATION
  Report Type: Spontaneous
  Country: US (occurrence: US)
  Receive Date: 20130206
  Receipt Date: 20130206
  Transmission Date: 20140127
  Serious: No
  Sender: FDA-Public Use
  Company Number: US-ALLERGAN-1216878US

PATIENT
  Age: 61 Year
  Sex: Female

DRUGS (8)
  1. RESTASIS? [Suspect]
     Indication: DRY EYE
     Dosage: 2 GTT, BID
     Route: 047
     Dates: start: 2007, end: 20121121
  2. RESTASIS? [Suspect]
     Dosage: 2 GTT, SINGLE
     Route: 047
     Dates: start: 20071121
  3. GENTEAL [Concomitant]
     Indication: DRY EYE
     Dosage: UNK UNK, PRN
     Route: 047
  4. SYNTHROID [Concomitant]
     Indication: THYROID THERAPY
     Dosage: 0.112 ?G, QD
     Route: 048
  5. TYLENOL [Concomitant]
     Indication: PAIN
     Dosage: UNK UNK, PRN
     Route: 048
  6. ASA [Concomitant]
     Indication: MIXED CONNECTIVE TISSUE DISEASE
     Dosage: UNK UNK, PRN
     Route: 048
  7. BYSTOLIC [Concomitant]
     Indication: HYPERTENSION
     Dosage: 1 DF, QD
     Route: 048
  8. CYMBALTA [Concomitant]
     Indication: PRODUCT USED FOR UNKNOWN INDICATION
     Dosage: 1 DF, QD
     Route: 048

REACTIONS (4)
  - Instillation site pain [Unknown]
  - Instillation site pain [Unknown]
  - Ocular hyperaemia [Unknown]
  - Eye swelling [Unknown]
